FAERS Safety Report 9528779 (Version 1)
Quarter: 2013Q2

REPORT INFORMATION
  Report Type: Spontaneous
  Country: US (occurrence: None)
  Receive Date: 20130401
  Receipt Date: 20130401
  Transmission Date: 20140414
  Serious: No
  Sender: FDA-Public Use
  Company Number: PHEH2012US023555

PATIENT
  Sex: Male

DRUGS (1)
  1. EXELON PATCH (RIVASTIGMINE) (TRANS-THERAPEUTIC-SYSTEM [Suspect]
     Route: 062

REACTIONS (4)
  - Cerebrovascular accident [None]
  - Hemiplegia [None]
  - Aphasia [None]
  - Dysphagia [None]
